FAERS Safety Report 15785228 (Version 2)
Quarter: 2019Q1

REPORT INFORMATION
  Report Type: Spontaneous
  Country: US (occurrence: US)
  Receive Date: 20190103
  Receipt Date: 20190121
  Transmission Date: 20190417
  Serious: No
  Sender: FDA-Public Use
  Company Number: US-PFIZER INC-2018535410

PATIENT
  Age: 60 Year
  Sex: Female
  Weight: 97.52 kg

DRUGS (2)
  1. METFORMIN ER [Concomitant]
     Active Substance: METFORMIN HYDROCHLORIDE
     Indication: DIABETES MELLITUS
     Dosage: UNK, 2X/DAY  (LOW DOSE MG TWICE A DAY BY MOUTH)
     Route: 048
     Dates: start: 2016
  2. CHANTIX [Suspect]
     Active Substance: VARENICLINE TARTRATE
     Indication: SMOKING CESSATION THERAPY
     Dosage: 1 MG, 2X/DAY
     Route: 048
     Dates: start: 2018, end: 201810

REACTIONS (1)
  - Pre-existing condition improved [Unknown]
